FAERS Safety Report 8999828 (Version 2)
Quarter: 2014Q2

REPORT INFORMATION
  Report Type: Spontaneous
  Country: US (occurrence: US)
  Receive Date: 20130102
  Receipt Date: 20140409
  Transmission Date: 20141212
  Serious: Yes (Hospitalization)
  Sender: FDA-Public Use
  Company Number: US-B.I. PHARMACEUTICALS,INC./RIDGEFIELD-2012-BI-04499BP

PATIENT
  Sex: Male
  Weight: 93.44 kg

DRUGS (12)
  1. PRADAXA [Suspect]
     Indication: ANTICOAGULANT THERAPY
     Dosage: 300 MG
     Route: 048
     Dates: start: 20101129, end: 20101226
  2. FUROSEMIDE [Concomitant]
     Dosage: 160 MG
     Route: 048
     Dates: start: 201011, end: 201101
  3. SODIUM BICARB [Concomitant]
     Dosage: 1300 MG
     Route: 048
  4. FOLIC ACID [Concomitant]
     Dosage: 1 MG
     Route: 048
     Dates: start: 2008
  5. DILTIAZEM ER [Concomitant]
     Route: 048
     Dates: start: 2008, end: 201206
  6. CALCITROL [Concomitant]
     Route: 048
     Dates: start: 2009, end: 201106
  7. ULORIC [Concomitant]
     Route: 048
  8. PROCRIT [Concomitant]
     Route: 058
  9. PACERONE [Concomitant]
     Dosage: 600 MG
     Route: 048
     Dates: start: 201011, end: 201401
  10. BENADRYL [Concomitant]
     Route: 048
  11. RENVELA [Concomitant]
     Route: 048
     Dates: start: 201012, end: 201106
  12. VITAMIN D [Concomitant]
     Dosage: 1000 U
     Route: 048

REACTIONS (6)
  - Upper gastrointestinal haemorrhage [Unknown]
  - Shock haemorrhagic [Unknown]
  - Haemorrhagic anaemia [Unknown]
  - Coagulopathy [Unknown]
  - Haematuria [Unknown]
  - Syncope [Unknown]
